FAERS Safety Report 7935717-5 (Version None)
Quarter: 2011Q4

REPORT INFORMATION
  Report Type: 
  Country: None (occurrence: None)
  Receive Date: 20111123
  Receipt Date: 20111118
  Transmission Date: 20120403
  Serious: Yes (Death, Hospitalization)
  Sender: FDA-Public Use
  Company Number: ES-JNJFOC-20100305112

PATIENT
  Age: 66 Year
  Sex: Female
  Weight: 95 kg

DRUGS (7)
  1. DURAGESIC-100 [Suspect]
     Route: 062
     Dates: start: 20091024, end: 20091201
  2. FOLIC ACID [Concomitant]
     Indication: ILL-DEFINED DISORDER
     Route: 048
     Dates: start: 20090421
  3. MORPHINE [Suspect]
     Indication: ILL-DEFINED DISORDER
     Route: 065
  4. ENOXAPARIN [Concomitant]
     Indication: ILL-DEFINED DISORDER
     Dates: start: 20090421
  5. FUROSEMIDE [Concomitant]
     Indication: ILL-DEFINED DISORDER
     Dates: start: 20090113
  6. ARANESP [Concomitant]
     Indication: ILL-DEFINED DISORDER
     Dates: start: 20090413
  7. DURAGESIC-100 [Suspect]
     Indication: BONE PAIN
     Route: 062
     Dates: start: 20070203, end: 20091023

REACTIONS (5)
  - OVERDOSE [None]
  - MULTIPLE MYELOMA [None]
  - NERVOUS SYSTEM DISORDER [None]
  - RENAL FAILURE ACUTE [None]
  - INFLUENZA [None]
